FAERS Safety Report 18663566 (Version 2)
Quarter: 2020Q4

REPORT INFORMATION
  Report Type: Report from Study
  Country: FR (occurrence: FR)
  Receive Date: 20201224
  Receipt Date: 20201229
  Transmission Date: 20210114
  Serious: Yes (Death, Other)
  Sender: FDA-Public Use
  Company Number: FR-GILEAD-2020-0510602

PATIENT
  Sex: Male

DRUGS (1)
  1. KTE-X19 [Suspect]
     Active Substance: AXICABTAGENE CILOLEUCEL
     Indication: ACUTE LYMPHOCYTIC LEUKAEMIA
     Dosage: UNK
     Route: 065
     Dates: start: 202012, end: 202012

REACTIONS (1)
  - Acute lymphocytic leukaemia [Fatal]

NARRATIVE: CASE EVENT DATE: 202012
